FAERS Safety Report 23262931 (Version 2)
Quarter: 2023Q4

REPORT INFORMATION
  Report Type: Other
  Country: GB (occurrence: GB)
  Receive Date: 20231205
  Receipt Date: 20231219
  Transmission Date: 20240109
  Serious: Yes (Disabling)
  Sender: FDA-Public Use
  Company Number: None

PATIENT

DRUGS (19)
  1. MONTELUKAST SODIUM [Suspect]
     Active Substance: MONTELUKAST SODIUM
     Indication: Ill-defined disorder
     Dosage: 10 MILLIGRAM, (AT NIGHT)
     Route: 048
     Dates: start: 20231013
  2. MONTELUKAST SODIUM [Suspect]
     Active Substance: MONTELUKAST SODIUM
     Dosage: UNK
     Route: 065
     Dates: start: 20231124
  3. BECLOMETHASONE DIPROPIONATE [Concomitant]
     Active Substance: BECLOMETHASONE DIPROPIONATE
     Indication: Ill-defined disorder
     Dosage: 4 DOSAGE FORM, (TWO APPLICATIONS OF SPRAY IN BOTH NOSTRILS TWIC...)
     Route: 045
     Dates: start: 20231108, end: 20231109
  4. CLARITHROMYCIN [Concomitant]
     Active Substance: CLARITHROMYCIN
     Indication: Ill-defined disorder
     Dosage: 1 DOSAGE FORM, BID (TAKE ONE EVERY TWELVE HRS FOR 14 DAYS)
     Route: 065
     Dates: start: 20231110, end: 20231124
  5. DOXYCYCLINE [Concomitant]
     Active Substance: DOXYCYCLINE
     Indication: Ill-defined disorder
     Dosage: TWO TABLETS NOW, THEN ONE TABLET DAILY FOR NEXT FOUR DAYS
     Route: 048
     Dates: start: 20231009, end: 20231014
  6. ESTRADIOL [Concomitant]
     Active Substance: ESTRADIOL
     Indication: Ill-defined disorder
     Dosage: 1 DOSAGE FORM, BID, (APPLY ONE TWICE WEEKLY)
     Route: 061
     Dates: start: 20230629
  7. FLUTICASONE FUROATE [Concomitant]
     Active Substance: FLUTICASONE FUROATE
     Indication: Ill-defined disorder
     Dosage: OD (TWO SPRAYS ONCE DAILY TO EACH NOSTRIL. ONCE UND...)
     Route: 065
     Dates: start: 20231103
  8. FLUTICASONE FUROATE [Concomitant]
     Active Substance: FLUTICASONE FUROATE
     Dosage: 4 DOSAGE FORM, OD, (TWO SPRAYS ONCE DAILY TO EACH NOSTRIL. ONCE UND...)
     Route: 045
     Dates: start: 20231103
  9. BECLOMETHASONE\FORMOTEROL [Concomitant]
     Active Substance: BECLOMETHASONE\FORMOTEROL
     Indication: Ill-defined disorder
     Dosage: BID (TWO PUFFS TO BE INHALED TWICE A DAY)
     Route: 065
     Dates: start: 20230629
  10. BECLOMETHASONE\FORMOTEROL [Concomitant]
     Active Substance: BECLOMETHASONE\FORMOTEROL
     Dosage: 2 DOSAGE FORM, BID
     Route: 055
     Dates: start: 20230629
  11. MONTELUKAST [Concomitant]
     Active Substance: MONTELUKAST SODIUM
     Indication: Ill-defined disorder
     Dosage: UNK, QD (TAKE ONE AT NIGHT)
     Route: 065
     Dates: start: 20231013
  12. NAPROXEN [Concomitant]
     Active Substance: NAPROXEN
     Indication: Ill-defined disorder
     Dosage: 1 DOSAGE FORM, BID, (ONE TO BE TAKEN TWICE A DAY )
     Route: 065
     Dates: start: 20231123
  13. OMEPRAZOLE [Concomitant]
     Active Substance: OMEPRAZOLE
     Indication: Ill-defined disorder
     Dosage: 1 DOSAGE FORM BID (ONE CAPSULE TO BE TAKEN TWICE A DAY)
     Route: 048
     Dates: start: 20230629
  14. PREDNISOLONE [Concomitant]
     Active Substance: PREDNISOLONE
     Indication: Ill-defined disorder
     Dosage: 8 DOSAGE FORM, OD (TAKE 8 TABLETS ONCE A DAY FOR 5 DAYS )
     Route: 048
     Dates: start: 20231030, end: 20231102
  15. PROMETHAZINE HYDROCHLORIDE [Concomitant]
     Active Substance: PROMETHAZINE HYDROCHLORIDE
     Indication: Ill-defined disorder
     Dosage: UNK, QD (ONE OR TWO TABLETS TO BE TAKEN AT NIGHT)
     Route: 048
     Dates: start: 20230629
  16. ALBUTEROL SULFATE [Concomitant]
     Active Substance: ALBUTEROL SULFATE
     Indication: Ill-defined disorder
     Dosage: 2 DOSAGE FORM, PRN, (INHALE 2 DOSES AS NEEDED)
     Route: 065
     Dates: start: 20230629
  17. SERTRALINE [Concomitant]
     Active Substance: SERTRALINE HYDROCHLORIDE
     Indication: Ill-defined disorder
     Dosage: UNK, QD (TAKE ONE DAILY)
     Route: 065
     Dates: start: 20230629
  18. SERTRALINE [Concomitant]
     Active Substance: SERTRALINE HYDROCHLORIDE
     Dosage: 1 DOSAGE FORM, QD
     Route: 065
     Dates: start: 20230629
  19. THIAMINE [Concomitant]
     Active Substance: THIAMINE
     Indication: Ill-defined disorder
     Dosage: 1 DOSAGE FORM, TID (ONE TABLET TO BE TAKEN THREE TIMES A DAY)
     Route: 048
     Dates: start: 20230629

REACTIONS (6)
  - Akathisia [Unknown]
  - Dysgraphia [Unknown]
  - Movement disorder [Unknown]
  - Mouth ulceration [Unknown]
  - Malaise [Unknown]
  - Dry mouth [Unknown]

NARRATIVE: CASE EVENT DATE: 20231124
